FAERS Safety Report 7719138-6 (Version None)
Quarter: 2011Q3

REPORT INFORMATION
  Report Type: 
  Country: None (occurrence: None)
  Receive Date: 20110824
  Receipt Date: 20110810
  Transmission Date: 20111222
  Serious: Yes (Congenital Anomaly)
  Sender: FDA-Public Use
  Company Number: 2011SP002786

PATIENT
  Age: 28 Day
  Sex: Male

DRUGS (6)
  1. BERODUAL [Concomitant]
  2. ALVESCO [Suspect]
     Indication: ASTHMA
     Dosage: 160 MG;BID;TRANSPLACENTAL
     Route: 064
     Dates: start: 20091117, end: 20100104
  3. ALBUTEROL SULFATE [Suspect]
     Indication: ASTHMA
     Dosage: PRN;TRANSPLACENTAL
     Route: 064
     Dates: start: 20091117, end: 20110808
  4. FEMIBION /01597501/ [Concomitant]
  5. AMOXICILLIN [Concomitant]
  6. JUNIK [Concomitant]

REACTIONS (3)
  - PULMONARY SEQUESTRATION [None]
  - POLYDACTYLY [None]
  - MATERNAL DRUGS AFFECTING FOETUS [None]
